FAERS Safety Report 13929846 (Version 1)
Quarter: 2017Q3

REPORT INFORMATION
  Report Type: Spontaneous
  Country: US (occurrence: US)
  Receive Date: 20170901
  Receipt Date: 20170901
  Transmission Date: 20171127
  Serious: Yes (Other)
  Sender: FDA-Public Use
  Company Number: US-GLENMARK PHARMACEUTICALS-2017GMK028657

PATIENT
  Age: 57 Year
  Sex: Male

DRUGS (6)
  1. LEVOFLOXACIN. [Suspect]
     Active Substance: LEVOFLOXACIN
     Indication: ASPIRATION
  2. ALBUTEROL                          /00139501/ [Suspect]
     Active Substance: ALBUTEROL
     Indication: BRONCHIOLITIS
     Dosage: UNK
     Route: 065
  3. BECLOMETHASONE                     /00212602/ [Suspect]
     Active Substance: BECLOMETHASONE
     Indication: BRONCHIOLITIS
     Dosage: UNK
  4. LEVOFLOXACIN. [Suspect]
     Active Substance: LEVOFLOXACIN
     Indication: BRONCHIOLITIS
     Dosage: UNK
     Route: 065
  5. BECLOMETHASONE                     /00212602/ [Suspect]
     Active Substance: BECLOMETHASONE
     Indication: ASPIRATION
  6. ALBUTEROL                          /00139501/ [Suspect]
     Active Substance: ALBUTEROL
     Indication: ASPIRATION

REACTIONS (4)
  - Drug ineffective for unapproved indication [Unknown]
  - Condition aggravated [Recovering/Resolving]
  - Aspiration [Recovering/Resolving]
  - Bronchiolitis [Recovering/Resolving]
